FAERS Safety Report 7544033-5 (Version None)
Quarter: 2011Q2

REPORT INFORMATION
  Report Type: 
  Country: None (occurrence: None)
  Receive Date: 20110613
  Receipt Date: 20050718
  Transmission Date: 20111010
  Serious: Yes (Death, Other)
  Sender: FDA-Public Use
  Company Number: PHHO2005CA09901

PATIENT
  Sex: Male

DRUGS (2)
  1. CLOZAPINE [Suspect]
     Dosage: 500 MG, QHS
     Route: 048
     Dates: start: 20041201
  2. CLOZAPINE [Suspect]
     Dosage: 25-50 MG, BID PRN
     Route: 048
     Dates: start: 20041201

REACTIONS (2)
  - CONFUSIONAL STATE [None]
  - DEATH [None]
